FAERS Safety Report 16287442 (Version 1)
Quarter: 2019Q2

REPORT INFORMATION
  Report Type: Spontaneous
  Country: FR (occurrence: FR)
  Receive Date: 20190508
  Receipt Date: 20190508
  Transmission Date: 20190711
  Serious: Yes (Other)
  Sender: FDA-Public Use
  Company Number: FR-GILEAD-2019-0406060

PATIENT
  Age: 66 Year
  Sex: Male

DRUGS (1)
  1. ZYDELIG [Suspect]
     Active Substance: IDELALISIB
     Indication: B-CELL LYMPHOMA
     Dosage: 150 MG, BID
     Route: 065
     Dates: start: 20190311

REACTIONS (4)
  - Pain [Unknown]
  - Leukocytosis [Unknown]
  - Myelofibrosis [Unknown]
  - Skin disorder [Unknown]

NARRATIVE: CASE EVENT DATE: 20190406
